FAERS Safety Report 12335989 (Version 2)
Quarter: 2016Q2

REPORT INFORMATION
  Report Type: Spontaneous
  Country: GB (occurrence: GB)
  Receive Date: 20160505
  Receipt Date: 20160512
  Transmission Date: 20160815
  Serious: Yes (Other)
  Sender: FDA-Public Use
  Company Number: GB-ROCHE-1751210

PATIENT
  Age: 30 Year
  Sex: Female

DRUGS (1)
  1. XELODA [Suspect]
     Active Substance: CAPECITABINE
     Indication: ADENOCARCINOMA OF COLON
     Route: 048

REACTIONS (2)
  - Periportal sinus dilatation [Recovering/Resolving]
  - Angina pectoris [Recovered/Resolved]
